FAERS Safety Report 23259779 (Version 1)
Quarter: 2023Q4

REPORT INFORMATION
  Report Type: Spontaneous
  Country: US (occurrence: None)
  Receive Date: 20231204
  Receipt Date: 20231204
  Transmission Date: 20240110
  Serious: Yes (Hospitalization)
  Sender: FDA-Public Use
  Company Number: None

PATIENT
  Age: 78 Year
  Sex: Male

DRUGS (3)
  1. ROPINIROLE HYDROCHLORIDE [Suspect]
     Active Substance: ROPINIROLE HYDROCHLORIDE
     Dates: start: 20230410
  2. INSULIN ASPART RECOMBINANT [Suspect]
     Active Substance: INSULIN ASPART
     Dates: start: 20230502
  3. JARDIANCE [Suspect]
     Active Substance: EMPAGLIFLOZIN

REACTIONS (12)
  - Nausea [None]
  - Vomiting [None]
  - Diarrhoea [None]
  - Gastroenteritis [None]
  - Syncope [None]
  - Dizziness [None]
  - Fluid intake reduced [None]
  - Fall [None]
  - Hypotension [None]
  - Hypovolaemia [None]
  - Adverse drug reaction [None]
  - Polyuria [None]

NARRATIVE: CASE EVENT DATE: 20231020
